FAERS Safety Report 20671551 (Version 1)
Quarter: 2022Q2

REPORT INFORMATION
  Report Type: Spontaneous
  Country: US (occurrence: US)
  Receive Date: 20220404
  Receipt Date: 20220404
  Transmission Date: 20220721
  Serious: No
  Sender: FDA-Public Use
  Company Number: US-BEH-2022143544

PATIENT
  Sex: Female

DRUGS (47)
  1. HIZENTRA [Suspect]
     Active Substance: HUMAN IMMUNOGLOBULIN G
     Indication: Immunodeficiency common variable
     Dosage: 14 GRAM, QW
     Route: 058
     Dates: start: 20200221
  2. ALBUTEROL SULFATE [Concomitant]
     Active Substance: ALBUTEROL SULFATE
  3. ALBUTEROL [Concomitant]
     Active Substance: ALBUTEROL
  4. ALENDRONATE [Concomitant]
     Active Substance: ALENDRONATE SODIUM
  5. ATORVASTATIN [Concomitant]
     Active Substance: ATORVASTATIN
  6. ATORVASTATIN [Concomitant]
     Active Substance: ATORVASTATIN
  7. CIMETIDINE [Concomitant]
     Active Substance: CIMETIDINE
  8. CYCLOBENZAPRINE [Concomitant]
     Active Substance: CYCLOBENZAPRINE
  9. DICLOFENAC [Concomitant]
     Active Substance: DICLOFENAC
  10. DOXAZOSIN [Concomitant]
     Active Substance: DOXAZOSIN MESYLATE
  11. DULOXETINE [Concomitant]
     Active Substance: DULOXETINE
  12. EPINEPHRINE [Concomitant]
     Active Substance: EPINEPHRINE
  13. FLUTICASONE [Concomitant]
     Active Substance: FLUTICASONE
  14. GABAPENTIN [Concomitant]
     Active Substance: GABAPENTIN
  15. GABAPENTIN [Concomitant]
     Active Substance: GABAPENTIN
  16. HYDROCORTISONE ACETATE [Concomitant]
     Active Substance: HYDROCORTISONE ACETATE
  17. HYDROXYZINE HYDROCHLORIDE [Concomitant]
     Active Substance: HYDROXYZINE HYDROCHLORIDE
  18. IBUPROFEN [Concomitant]
     Active Substance: IBUPROFEN
  19. IBUPROFEN [Concomitant]
     Active Substance: IBUPROFEN
  20. KEPPRA [Concomitant]
     Active Substance: LEVETIRACETAM
  21. KLOR-CON [Concomitant]
     Active Substance: POTASSIUM CHLORIDE
  22. LASIX [Concomitant]
     Active Substance: FUROSEMIDE
  23. LATUDA [Concomitant]
     Active Substance: LURASIDONE HYDROCHLORIDE
  24. LATUDA [Concomitant]
     Active Substance: LURASIDONE HYDROCHLORIDE
  25. LEVETIRACETAM [Concomitant]
     Active Substance: LEVETIRACETAM
  26. LORATADINE [Concomitant]
     Active Substance: LORATADINE
  27. MEDROXYPROGESTERONE [Concomitant]
     Active Substance: MEDROXYPROGESTERONE
  28. METHOCARBAMOL [Concomitant]
     Active Substance: METHOCARBAMOL
  29. MUCINEX [Concomitant]
     Active Substance: GUAIFENESIN
  30. MULTIVITAMIN ACTIVE WOMAN [Concomitant]
  31. NAPROXEN [Concomitant]
     Active Substance: NAPROXEN
  32. OMEPRAZOLE [Concomitant]
     Active Substance: OMEPRAZOLE
  33. CALCIUM [Concomitant]
     Active Substance: CALCIUM
  34. POLYETHYLENE GLYCOL 3350 [Concomitant]
     Active Substance: POLYETHYLENE GLYCOL 3350
  35. POTASSIUM CHLORIDE [Concomitant]
     Active Substance: POTASSIUM CHLORIDE
  36. PRAZOSIN [Concomitant]
     Active Substance: PRAZOSIN
  37. PRAZOSIN [Concomitant]
     Active Substance: PRAZOSIN
  38. PROMETHAZINE HYDROCHLORIDE [Concomitant]
     Active Substance: PROMETHAZINE HYDROCHLORIDE
  39. PROMETHAZINE [Concomitant]
     Active Substance: PROMETHAZINE HYDROCHLORIDE
  40. QVAR [Concomitant]
     Active Substance: BECLOMETHASONE DIPROPIONATE
  41. RANITIDINE [Concomitant]
     Active Substance: RANITIDINE
  42. SUMATRIPTAN [Concomitant]
     Active Substance: SUMATRIPTAN
  43. SUPREP BOWEL PREP [Concomitant]
     Active Substance: MAGNESIUM SULFATE\POTASSIUM SULFATE\SODIUM SULFATE
  44. TRAZODONE [Concomitant]
     Active Substance: TRAZODONE HYDROCHLORIDE
  45. TRAZODONE [Concomitant]
     Active Substance: TRAZODONE HYDROCHLORIDE
  46. VITAMIN D NOS [Concomitant]
     Active Substance: VITAMIN D NOS
  47. ZOFRAN [Concomitant]
     Active Substance: ONDANSETRON HYDROCHLORIDE

REACTIONS (1)
  - General physical health deterioration [Unknown]
